FAERS Safety Report 7626713-6 (Version None)
Quarter: 2011Q3

REPORT INFORMATION
  Report Type: 
  Country: None (occurrence: None)
  Receive Date: 20110721
  Receipt Date: 20110719
  Transmission Date: 20111222
  Serious: Yes (Other)
  Sender: FDA-Public Use
  Company Number: AU-ROCHE-790581

PATIENT

DRUGS (1)
  1. AVASTIN [Suspect]
     Route: 031

REACTIONS (1)
  - ANAPHYLACTIC REACTION [None]
